FAERS Safety Report 19225251 (Version 1)
Quarter: 2021Q2

REPORT INFORMATION
  Report Type: Spontaneous
  Country: US (occurrence: US)
  Receive Date: 20210506
  Receipt Date: 20210506
  Transmission Date: 20210717
  Serious: No
  Sender: FDA-Public Use
  Company Number: US-PFIZER INC-2021064265

PATIENT
  Age: 81 Year
  Sex: Male
  Weight: 104.33 kg

DRUGS (6)
  1. CASODEX [Concomitant]
     Active Substance: BICALUTAMIDE
     Indication: PROSTATE CANCER
     Dosage: 50 MG, 1X/DAY
  2. PRESERVISION AREDS 2 [Concomitant]
     Active Substance: MINERALS\VITAMINS
     Indication: MACULAR DEGENERATION
     Dosage: UNK, 2X/DAY (TAKES ONE IN THE MORNING AND ONE AT NIGHT )
  3. XARELTO [Concomitant]
     Active Substance: RIVAROXABAN
     Indication: THROMBOSIS
     Dosage: 20 MG, 1X/DAY
     Route: 048
     Dates: start: 201702
  4. LOSARTAN AND HYDROCHLOROTHIAZIDE [Concomitant]
     Active Substance: HYDROCHLOROTHIAZIDE\LOSARTAN POTASSIUM
     Dosage: 50 MG, 1X/DAY (TAKES ONCE A DAY)
     Route: 048
  5. LORBRENA [Suspect]
     Active Substance: LORLATINIB
     Indication: NON-SMALL CELL LUNG CANCER
     Dosage: 100 MG, 1X/DAY (ONCE A DAY BY MOUTH)
     Route: 048
     Dates: start: 20201228
  6. XALKORI [Concomitant]
     Active Substance: CRIZOTINIB
     Dosage: 250 MG, 2X/DAY (TOOK 2 PILLS A DAY)
     Route: 048
     Dates: start: 20170307, end: 20201227

REACTIONS (6)
  - Dyspnoea [Not Recovered/Not Resolved]
  - Musculoskeletal chest pain [Unknown]
  - Sleep apnoea syndrome [Unknown]
  - Cardiac disorder [Unknown]
  - Gait disturbance [Not Recovered/Not Resolved]
  - Arthralgia [Not Recovered/Not Resolved]

NARRATIVE: CASE EVENT DATE: 20210215
